FAERS Safety Report 5820270-2 (Version None)
Quarter: 2008Q3

REPORT INFORMATION
  Report Type: 
  Country: None (occurrence: None)
  Receive Date: 20080724
  Receipt Date: 20070803
  Transmission Date: 20090109
  Serious: Yes (Other)
  Sender: FDA-Public Use
  Company Number: A0652143A

PATIENT
  Age: 73 Year
  Sex: Female

DRUGS (8)
  1. AVANDIA [Suspect]
     Dosage: 8MG PER DAY
     Route: 048
     Dates: start: 20050101
  2. GLUCOPHAGE XR [Concomitant]
     Route: 048
  3. GLYBURIDE [Concomitant]
  4. COZAAR [Concomitant]
  5. LASIX [Concomitant]
  6. ZOCOR [Concomitant]
  7. STELAZINE [Concomitant]
  8. ASPIRIN [Concomitant]

REACTIONS (5)
  - DIABETES MELLITUS INADEQUATE CONTROL [None]
  - DRUG INEFFECTIVE [None]
  - FEELING ABNORMAL [None]
  - OEDEMA PERIPHERAL [None]
  - WEIGHT INCREASED [None]
